FAERS Safety Report 9815916 (Version 9)
Quarter: 2015Q2

REPORT INFORMATION
  Report Type: Spontaneous
  Country: US (occurrence: US)
  Receive Date: 20140114
  Receipt Date: 20150424
  Transmission Date: 20150821
  Serious: Yes (Hospitalization, Other)
  Sender: FDA-Public Use
  Company Number: US-009507513-1401USA000964

PATIENT
  Sex: Female
  Weight: 69.84 kg

DRUGS (10)
  1. FOSAMAX [Suspect]
     Active Substance: ALENDRONATE SODIUM
     Dosage: 70 MG, QW
     Route: 048
     Dates: end: 20060928
  2. ALENDRONATE SODIUM. [Suspect]
     Active Substance: ALENDRONATE SODIUM
     Dosage: 70 MG, QW
     Route: 048
     Dates: start: 20100415, end: 201012
  3. FOSAMAX [Suspect]
     Active Substance: ALENDRONATE SODIUM
     Dosage: 70 MG, QW
     Route: 048
     Dates: end: 200802
  4. VITAMIN D [Concomitant]
     Active Substance: CHOLECALCIFEROL
     Dosage: 400-1000 IU, QD
     Dates: start: 2000
  5. FOSAMAX [Suspect]
     Active Substance: ALENDRONATE SODIUM
     Indication: OSTEOPOROSIS
     Dosage: UNK
     Route: 048
     Dates: start: 1998
  6. ALENDRONATE SODIUM. [Suspect]
     Active Substance: ALENDRONATE SODIUM
     Indication: OSTEOPOROSIS
     Dosage: 70 MG, QW
     Route: 048
     Dates: start: 200802, end: 201003
  7. CALCIUM (UNSPECIFIED) [Concomitant]
     Active Substance: CALCIUM
     Dosage: 1000 MG, QD
     Dates: start: 2000
  8. FOSAMAX [Suspect]
     Active Substance: ALENDRONATE SODIUM
     Dosage: 70 MG, QW
     Route: 048
     Dates: end: 200509
  9. FOSAMAX [Suspect]
     Active Substance: ALENDRONATE SODIUM
     Dosage: UNK, QW
     Route: 048
     Dates: start: 20070305
  10. VITAMIN D [Concomitant]
     Active Substance: CHOLECALCIFEROL
     Dosage: 400-1000 MG, QD
     Dates: start: 2000

REACTIONS (43)
  - Intramedullary rod insertion [Unknown]
  - Knee arthroplasty [Unknown]
  - Osteoarthritis [Unknown]
  - Deep vein thrombosis [Recovered/Resolved]
  - Pyrexia [Unknown]
  - Adverse event [Unknown]
  - Blister [Recovering/Resolving]
  - Sinusitis [Not Recovered/Not Resolved]
  - Vitamin D deficiency [Unknown]
  - Bronchial hyperreactivity [Not Recovered/Not Resolved]
  - Fatigue [Unknown]
  - Aortic valve incompetence [Unknown]
  - Abdominal discomfort [Unknown]
  - Inappropriate schedule of drug administration [Unknown]
  - Haematuria [Not Recovered/Not Resolved]
  - Temporal arteritis [Unknown]
  - Chest pain [Unknown]
  - Nausea [Recovering/Resolving]
  - Headache [Not Recovered/Not Resolved]
  - Drug ineffective [Unknown]
  - Polymyalgia rheumatica [Not Recovered/Not Resolved]
  - Osteoarthritis [Unknown]
  - Femur fracture [Unknown]
  - Breast cancer [Unknown]
  - Mammogram abnormal [Unknown]
  - Tooth abscess [Unknown]
  - Macrocytosis [Unknown]
  - Arthralgia [Unknown]
  - Gastrooesophageal reflux disease [Unknown]
  - Anaemia postoperative [Unknown]
  - Sinusitis [Unknown]
  - Fall [Unknown]
  - Abscess jaw [Recovering/Resolving]
  - Fractured sacrum [Unknown]
  - Sinus operation [Unknown]
  - Pain in extremity [Unknown]
  - Temporal arteritis [Not Recovered/Not Resolved]
  - Asthma [Unknown]
  - Temporal arteritis [Unknown]
  - Tachyarrhythmia [Unknown]
  - Fall [Unknown]
  - Hyperlipidaemia [Unknown]
  - Pneumonia [Not Recovered/Not Resolved]

NARRATIVE: CASE EVENT DATE: 2000
